FAERS Safety Report 4698473-2 (Version None)
Quarter: 2005Q2

REPORT INFORMATION
  Report Type: 
  Country: None (occurrence: None)
  Receive Date: 20050621
  Receipt Date: 20050602
  Transmission Date: 20051028
  Serious: Yes (Hospitalization, Disabling)
  Sender: FDA-Public Use
  Company Number: FR_050606567

PATIENT
  Age: 75 Year
  Sex: Female

DRUGS (5)
  1. PERGOLIDE MESYLATE [Suspect]
     Indication: PARKINSON'S DISEASE
     Dosage: 2.7 MG DAY
     Dates: start: 20020215, end: 20050322
  2. HEPT-A-MYL (HEPTAMINOL HYDROCHLORIDE) [Concomitant]
  3. MOTILIUM (DOMPERIDONE MALEATE) [Concomitant]
  4. SINEMET [Concomitant]
  5. SEROPRAM (CITALOPRAM HYDROBROMIDE) [Concomitant]

REACTIONS (7)
  - ANXIETY [None]
  - AORTIC VALVE INCOMPETENCE [None]
  - AUTONOMIC NERVOUS SYSTEM IMBALANCE [None]
  - DYSPNOEA [None]
  - FALL [None]
  - ORTHOSTATIC HYPOTENSION [None]
  - RADIUS FRACTURE [None]
